FAERS Safety Report 25229206 (Version 1)
Quarter: 2025Q2

REPORT INFORMATION
  Report Type: Spontaneous
  Country: US (occurrence: None)
  Receive Date: 20250422
  Receipt Date: 20250422
  Transmission Date: 20250716
  Serious: Yes (Hospitalization)
  Sender: FDA-CTU
  Company Number: None

PATIENT
  Age: 54 Year
  Sex: Female

DRUGS (1)
  1. AFINITOR [Suspect]
     Active Substance: EVEROLIMUS
     Indication: Renal cancer
     Dosage: FREQUENCY : DAILY;?

REACTIONS (7)
  - Intentional dose omission [None]
  - Urinary tract infection [None]
  - Palmar-plantar erythrodysaesthesia syndrome [None]
  - Asthenia [None]
  - Nausea [None]
  - Abdominal pain upper [None]
  - Pain in extremity [None]
